FAERS Safety Report 6916626-7 (Version None)
Quarter: 2010Q3

REPORT INFORMATION
  Report Type: 
  Country: None (occurrence: None)
  Receive Date: 20100810
  Receipt Date: 20100727
  Transmission Date: 20110219
  Serious: Yes (Hospitalization, Other)
  Sender: FDA-Public Use
  Company Number: US-BAYER-201023243NA

PATIENT
  Age: 48 Year
  Sex: Female
  Weight: 104 kg

DRUGS (9)
  1. YAZ [Suspect]
     Indication: PRODUCT USED FOR UNKNOWN INDICATION
     Route: 048
     Dates: start: 20070501, end: 20070601
  2. YASMIN [Suspect]
     Indication: ORAL CONTRACEPTION
     Dates: start: 20070531, end: 20070608
  3. LISINOPRIL [Concomitant]
     Dates: start: 20060101
  4. IBUPROFEN [Concomitant]
     Dates: start: 19800101
  5. THYROXIN [Concomitant]
     Dates: start: 20030101
  6. CYMBALTA [Concomitant]
  7. PROPRANOLOL [Concomitant]
  8. SODIUM BICARBONATE [Concomitant]
     Dates: start: 20070601
  9. METFORMIN HCL [Concomitant]
     Indication: METABOLIC SYNDROME

REACTIONS (10)
  - ANXIETY [None]
  - DEEP VEIN THROMBOSIS [None]
  - DIZZINESS [None]
  - DYSPNOEA [None]
  - NAUSEA [None]
  - PAIN IN EXTREMITY [None]
  - PALPITATIONS [None]
  - PULMONARY EMBOLISM [None]
  - TACHYPNOEA [None]
  - VOMITING [None]
